FAERS Safety Report 21765405 (Version 1)
Quarter: 2022Q4

REPORT INFORMATION
  Report Type: Spontaneous
  Country: US (occurrence: None)
  Receive Date: 20221222
  Receipt Date: 20221222
  Transmission Date: 20230113
  Serious: Yes (Other)
  Sender: FDA-Public Use
  Company Number: US-MICRO LABS LIMITED-ML2022-06311

PATIENT
  Age: 44 Year
  Sex: Female

DRUGS (5)
  1. KETOROLAC [Suspect]
     Active Substance: KETOROLAC TROMETHAMINE
  2. LABETALOL [Suspect]
     Active Substance: LABETALOL\LABETALOL HYDROCHLORIDE
  3. HEPARIN [Suspect]
     Active Substance: HEPARIN SODIUM
  4. MAGNESIUM [Suspect]
     Active Substance: MAGNESIUM
     Indication: Pre-eclampsia
     Dosage: STOPPED
     Route: 042
  5. MAGNESIUM [Suspect]
     Active Substance: MAGNESIUM
     Route: 042

REACTIONS (2)
  - Hyperkalaemia [Recovered/Resolved]
  - Exposure during pregnancy [Unknown]
